FAERS Safety Report 9817671 (Version 1)
Quarter: 2014Q1

REPORT INFORMATION
  Report Type: Spontaneous
  Country: US (occurrence: None)
  Receive Date: 20140110
  Receipt Date: 20140110
  Transmission Date: 20141002
  Serious: No
  Sender: FDA-Public Use
  Company Number: None

PATIENT
  Age: 5 Year
  Sex: Female

DRUGS (1)
  1. FRED^S KIDS CHILDREN^S IBUPROFEN [Suspect]
     Dosage: LOT #L210099?EXP: 10/14

REACTIONS (3)
  - Hypersensitivity [None]
  - Eye swelling [None]
  - Swelling face [None]
